FAERS Safety Report 8443721-6 (Version None)
Quarter: 2012Q2

REPORT INFORMATION
  Report Type: 
  Country: None (occurrence: None)
  Receive Date: 20120618
  Receipt Date: 20120611
  Transmission Date: 20120825
  Serious: Yes (Other)
  Sender: FDA-Public Use
  Company Number: US-ELI_LILLY_AND_COMPANY-US201206003295

PATIENT
  Age: 26 Year
  Sex: Male

DRUGS (1)
  1. PROZAC [Suspect]
     Dosage: 1 DF, UNK

REACTIONS (8)
  - VOMITING [None]
  - WEIGHT INCREASED [None]
  - CHEST PAIN [None]
  - DYSPNOEA [None]
  - WEIGHT DECREASED [None]
  - EXCESSIVE SKIN [None]
  - SCAR [None]
  - GASTROOESOPHAGEAL REFLUX DISEASE [None]
